FAERS Safety Report 21678316 (Version 1)
Quarter: 2022Q4

REPORT INFORMATION
  Report Type: Spontaneous
  Country: US (occurrence: US)
  Receive Date: 20221203
  Receipt Date: 20221203
  Transmission Date: 20230113
  Serious: No
  Sender: FDA-Public Use
  Company Number: US-002147023-NVSC2022US280008

PATIENT
  Sex: Female

DRUGS (1)
  1. LEQVIO [Suspect]
     Active Substance: INCLISIRAN SODIUM
     Indication: Product used for unknown indication
     Dosage: UNK 284 MG/1.5 ML (ONE SINGLE DOSE)
     Route: 058
     Dates: start: 20221128

REACTIONS (1)
  - Influenza like illness [Not Recovered/Not Resolved]
